FAERS Safety Report 8362052-6 (Version None)
Quarter: 2012Q2

REPORT INFORMATION
  Report Type: 
  Country: None (occurrence: None)
  Receive Date: 20120515
  Receipt Date: 20120507
  Transmission Date: 20120825
  Serious: Yes (Other)
  Sender: FDA-Public Use
  Company Number: US-ROCHE-1038790

PATIENT
  Sex: Female

DRUGS (6)
  1. RITUXAN [Suspect]
     Route: 065
     Dates: end: 20120115
  2. BENDAMUSTINE HYDROCHLORIDE [Suspect]
     Indication: B-CELL LYMPHOMA
     Route: 042
     Dates: start: 20110518, end: 20120112
  3. RITUXAN [Suspect]
     Indication: NON-HODGKIN'S LYMPHOMA
     Route: 042
     Dates: start: 20080101
  4. NORVASC [Concomitant]
     Indication: HYPERTENSION
     Route: 048
  5. PREDNISONE [Concomitant]
     Indication: PNEUMONITIS
     Route: 048
     Dates: start: 20120207
  6. PREDNISONE [Concomitant]

REACTIONS (4)
  - PULMONARY TOXICITY [None]
  - DYSPNOEA EXERTIONAL [None]
  - DYSPNOEA [None]
  - PNEUMONITIS [None]
